FAERS Safety Report 17139728 (Version 1)
Quarter: 2019Q4

REPORT INFORMATION
  Report Type: Spontaneous
  Country: SE (occurrence: SE)
  Receive Date: 20191211
  Receipt Date: 20191211
  Transmission Date: 20200122
  Serious: Yes (Hospitalization)
  Sender: FDA-Public Use
  Company Number: SE-TEVA-2019-SE-1149112

PATIENT
  Age: 37 Year
  Sex: Female

DRUGS (6)
  1. QUETIAPINE. [Suspect]
     Active Substance: QUETIAPINE
     Dosage: UNKNOWN DOSE
     Route: 048
     Dates: start: 20180429, end: 20180429
  2. OXASCAND [Suspect]
     Active Substance: OXAZEPAM
     Dosage: UNKNOWN DOSE
     Route: 048
     Dates: start: 20180429, end: 20180429
  3. LERGIGAN [PROMETHAZINE HYDROCHLORIDE] [Suspect]
     Active Substance: PROMETHAZINE HYDROCHLORIDE
     Dosage: 20 PCS
     Route: 048
     Dates: start: 20180429, end: 20180429
  4. LAMICTAL [Suspect]
     Active Substance: LAMOTRIGINE
     Dosage: UNKNOWN DOSE
     Route: 048
     Dates: start: 20180429, end: 20180429
  5. ZYPREXA [Suspect]
     Active Substance: OLANZAPINE
     Dosage: UNKNOWN DOSE
     Route: 048
     Dates: start: 20180429, end: 20180429
  6. IMOVANE [Suspect]
     Active Substance: ZOPICLONE
     Dosage: UNKNOWN DOSE
     Route: 048
     Dates: start: 20180429, end: 20180429

REACTIONS (3)
  - Intentional self-injury [Unknown]
  - Restlessness [Unknown]
  - Intentional overdose [Unknown]

NARRATIVE: CASE EVENT DATE: 20180429
